FAERS Safety Report 20080802 (Version 1)
Quarter: 2021Q4

REPORT INFORMATION
  Report Type: Spontaneous
  Country: CN (occurrence: CN)
  Receive Date: 20211117
  Receipt Date: 20211117
  Transmission Date: 20220303
  Serious: Yes (Other)
  Sender: FDA-Public Use
  Company Number: CN-BAYER-2021A249375

PATIENT
  Age: 92 Year
  Sex: Male
  Weight: 50 kg

DRUGS (4)
  1. AVELOX [Suspect]
     Active Substance: MOXIFLOXACIN HYDROCHLORIDE
     Indication: Pneumonia
     Dosage: 0.4 G, QD, STOMACH TUBE INJECTION
     Dates: start: 20211025, end: 20211026
  2. AVELOX [Suspect]
     Active Substance: MOXIFLOXACIN HYDROCHLORIDE
     Indication: Anti-infective therapy
  3. PIPERACILLIN SODIUM\TAZOBACTAM SODIUM [Concomitant]
     Active Substance: PIPERACILLIN SODIUM\TAZOBACTAM SODIUM
     Indication: Anti-infective therapy
     Dosage: UNK
     Dates: start: 20210930, end: 20211011
  4. PIPERACILLIN SODIUM\TAZOBACTAM SODIUM [Concomitant]
     Active Substance: PIPERACILLIN SODIUM\TAZOBACTAM SODIUM
     Indication: Anti-infective therapy
     Dosage: 4.5 G, Q8HR
     Route: 041
     Dates: start: 20211024

REACTIONS (3)
  - Delirium [Recovering/Resolving]
  - Confusional state [None]
  - Restlessness [None]

NARRATIVE: CASE EVENT DATE: 20211025
